FAERS Safety Report 23841091 (Version 1)
Quarter: 2024Q2

REPORT INFORMATION
  Report Type: Spontaneous
  Country: US (occurrence: US)
  Receive Date: 20240510
  Receipt Date: 20240510
  Transmission Date: 20240716
  Serious: Yes (Hospitalization, Other)
  Sender: FDA-Public Use
  Company Number: US-AMGEN-USASP2024090342

PATIENT
  Age: 29 Year
  Sex: Male

DRUGS (1)
  1. FILGRASTIM [Suspect]
     Active Substance: FILGRASTIM
     Indication: Bone marrow donation
     Dosage: UNK
     Route: 065

REACTIONS (4)
  - Spontaneous splenic rupture [Not Recovered/Not Resolved]
  - Syncope [Recovered/Resolved]
  - Skin laceration [Recovered/Resolved]
  - Spinal pain [Recovered/Resolved]
